FAERS Safety Report 5106217-5 (Version None)
Quarter: 2006Q3

REPORT INFORMATION
  Report Type: 
  Country: None (occurrence: None)
  Receive Date: 20060918
  Receipt Date: 20060830
  Transmission Date: 20061208
  Serious: Yes (Other)
  Sender: FDA-Public Use
  Company Number: PHBS2006JP13340

PATIENT

DRUGS (2)
  1. DIOVAN [Suspect]
     Route: 048
  2. CONIEL [Concomitant]

REACTIONS (1)
  - ABDOMINAL NEOPLASM [None]
